FAERS Safety Report 6257861-3 (Version None)
Quarter: 2009Q3

REPORT INFORMATION
  Report Type: 
  Country: None (occurrence: None)
  Receive Date: 20090707
  Receipt Date: 20070925
  Transmission Date: 20100115
  Serious: Yes (Other)
  Sender: FDA-Public Use
  Company Number: US-ASTRAZENECA-2006UW21177

PATIENT
  Age: 55 Year
  Sex: Male
  Weight: 106.6 kg

DRUGS (42)
  1. SEROQUEL [Suspect]
     Indication: ANXIETY
     Route: 048
     Dates: start: 20030101
  2. SEROQUEL [Suspect]
     Indication: POST-TRAUMATIC STRESS DISORDER
     Route: 048
     Dates: start: 20030101
  3. SEROQUEL [Suspect]
     Indication: SCHIZOPHRENIA
     Route: 048
     Dates: start: 20030101
  4. SEROQUEL [Suspect]
     Indication: DEPRESSION
     Route: 048
     Dates: start: 20030101
  5. SEROQUEL [Suspect]
     Indication: MENTAL DISORDER
     Route: 048
     Dates: start: 20030101
  6. SEROQUEL [Suspect]
     Dosage: 200 TO 1500 MG FLUCTUATING
     Route: 048
     Dates: start: 20041105
  7. SEROQUEL [Suspect]
     Dosage: 200 TO 1500 MG FLUCTUATING
     Route: 048
     Dates: start: 20041105
  8. SEROQUEL [Suspect]
     Dosage: 200 TO 1500 MG FLUCTUATING
     Route: 048
     Dates: start: 20041105
  9. SEROQUEL [Suspect]
     Dosage: 200 TO 1500 MG FLUCTUATING
     Route: 048
     Dates: start: 20041105
  10. SEROQUEL [Suspect]
     Dosage: 200 TO 1500 MG FLUCTUATING
     Route: 048
     Dates: start: 20041105
  11. HALDOL [Concomitant]
  12. NAVANE [Concomitant]
  13. RISPERDAL [Concomitant]
  14. STELAZINE [Concomitant]
  15. THORAZINE [Concomitant]
  16. ZYPREXA [Concomitant]
  17. HYDROXYZINE [Concomitant]
     Indication: ANXIETY
     Dosage: 50 TO 200 MG
     Route: 048
     Dates: start: 20041108
  18. HYDROXYZINE [Concomitant]
     Indication: INSOMNIA
     Dosage: 50 TO 200 MG
     Route: 048
     Dates: start: 20041108
  19. ARIPIPRAZOLE [Concomitant]
     Dosage: 10 TO 20 MG
     Route: 048
     Dates: start: 20041108
  20. VENLAFAXINE HCL [Concomitant]
     Indication: DEPRESSION
     Dosage: 225 MG TO 300 MG
     Route: 048
     Dates: start: 20070306
  21. ACETAMINOPHEN [Concomitant]
     Indication: PYREXIA
     Route: 048
     Dates: start: 20050411
  22. ASPIRIN [Concomitant]
     Indication: ANTICOAGULANT THERAPY
     Dosage: 81 TO 162 MG
     Route: 048
     Dates: start: 20001107
  23. ATENOLOL [Concomitant]
     Indication: CARDIAC DISORDER
     Dosage: 50 TO 100 MG
     Route: 048
     Dates: start: 20050411
  24. ATENOLOL [Concomitant]
     Indication: BLOOD PRESSURE
     Dosage: 50 TO 100 MG
     Route: 048
     Dates: start: 20050411
  25. CARDIZEM [Concomitant]
     Indication: CARDIAC DISORDER
     Dosage: 240 TO 360 MG
     Route: 048
     Dates: start: 20050411
  26. CARDIZEM [Concomitant]
     Indication: BLOOD PRESSURE
     Dosage: 240 TO 360 MG
     Route: 048
     Dates: start: 20050411
  27. FUROSEMIDE [Concomitant]
     Indication: DIURETIC THERAPY
     Route: 048
     Dates: start: 20050818
  28. LISINOPRIL [Concomitant]
     Indication: CARDIAC DISORDER
     Route: 048
     Dates: start: 20070306
  29. LISINOPRIL [Concomitant]
     Indication: BLOOD PRESSURE
     Route: 048
     Dates: start: 20070306
  30. RANITIDINE [Concomitant]
     Indication: GASTRIC DISORDER
     Route: 048
     Dates: start: 20050411
  31. SIMVASTATIN [Concomitant]
     Indication: BLOOD CHOLESTEROL
     Route: 048
     Dates: start: 20050411
  32. SILDENAFIL CITRATE [Concomitant]
     Indication: ERECTILE DYSFUNCTION
     Dosage: TAKE ONE-HALF TABLET BY MOUTH EVERY 24 HOURS AS NEEDED
     Route: 048
     Dates: start: 20050818
  33. LEVITRA [Concomitant]
     Indication: ERECTILE DYSFUNCTION
     Dosage: TAKE ONE-HALF TABLET BY MOUTH WEEKLY AS NEEDED
     Route: 048
     Dates: start: 20070306
  34. ALBUTEROL [Concomitant]
     Indication: DYSPNOEA
     Dosage: 90 MCG 200D, 2 PUFFS BY INHALATION FOUR TIMES A DAY
     Route: 048
     Dates: start: 20050818
  35. CLONIDINE HCL [Concomitant]
     Indication: CARDIAC DISORDER
     Route: 048
     Dates: start: 19990909
  36. CLONIDINE HCL [Concomitant]
     Indication: BLOOD PRESSURE
     Route: 048
     Dates: start: 19990909
  37. WELLBUTRIN [Concomitant]
     Dates: start: 20050818
  38. PRAZOSIN HCL [Concomitant]
     Indication: BLOOD PRESSURE
     Dosage: 1 TO 4 MG AT BEDTIME
     Route: 048
     Dates: start: 20070826
  39. PRAZOSIN HCL [Concomitant]
     Indication: NIGHTMARE
     Dosage: 1 TO 4 MG AT BEDTIME
     Route: 048
     Dates: start: 20070826
  40. PRAZOSIN HCL [Concomitant]
     Indication: MENTAL DISORDER
     Dosage: 1 TO 4 MG AT BEDTIME
     Route: 048
     Dates: start: 20070826
  41. METFORMIN HCL [Concomitant]
     Indication: DIABETES MELLITUS
     Dosage: ONE-HALF TABLET BY MOUTH TWICE A DAY
     Route: 048
     Dates: start: 20070926
  42. FERROUS SULFATE TAB [Concomitant]
     Indication: MINERAL SUPPLEMENTATION
     Route: 048
     Dates: start: 20001107

REACTIONS (3)
  - DIABETES MELLITUS [None]
  - DIABETIC NEUROPATHY [None]
  - TYPE 2 DIABETES MELLITUS [None]
